FAERS Safety Report 6701024-1 (Version None)
Quarter: 2010Q2

REPORT INFORMATION
  Report Type: 
  Country: None (occurrence: None)
  Receive Date: 20100428
  Receipt Date: 20100419
  Transmission Date: 20101027
  Serious: Yes (Hospitalization)
  Sender: FDA-Public Use
  Company Number: US-AMGEN-QUU376232

PATIENT
  Sex: Female
  Weight: 2.92 kg

DRUGS (6)
  1. ENBREL [Suspect]
     Indication: PSORIASIS
     Route: 064
     Dates: start: 20060405
  2. AMBIEN [Concomitant]
     Route: 064
  3. OXYCODONE [Concomitant]
     Route: 064
  4. NEXIUM [Concomitant]
     Route: 064
  5. PEPCID [Concomitant]
     Route: 064
  6. IRON [Concomitant]
     Route: 064

REACTIONS (1)
  - PREMATURE BABY [None]
